FAERS Safety Report 8154974-6 (Version None)
Quarter: 2012Q1

REPORT INFORMATION
  Report Type: 
  Country: None (occurrence: None)
  Receive Date: 20120221
  Receipt Date: 20120216
  Transmission Date: 20120608
  Serious: Yes (Death)
  Sender: FDA-Public Use
  Company Number: PHHY2012US013615

PATIENT
  Age: 50 Year
  Sex: Male

DRUGS (5)
  1. DEXAMETHASONE [Suspect]
     Indication: HISTIOCYTOSIS HAEMATOPHAGIC
     Dosage: UNK UKN, UNK
  2. INFLIXIMAB [Suspect]
     Indication: HISTIOCYTOSIS HAEMATOPHAGIC
     Dosage: UNK UKN, UNK
  3. DACLIZUMAB [Suspect]
     Indication: HISTIOCYTOSIS HAEMATOPHAGIC
     Dosage: UNK UKN, UNK
  4. CYCLOSPORINE [Suspect]
     Indication: HISTIOCYTOSIS HAEMATOPHAGIC
     Dosage: UNK UKN, UNK
  5. IMMUNE GLOBULIN (HUMAN) [Suspect]
     Indication: HISTIOCYTOSIS HAEMATOPHAGIC
     Dosage: UNK UKN, UNK

REACTIONS (2)
  - DRUG INEFFECTIVE [None]
  - HISTIOCYTOSIS HAEMATOPHAGIC [None]
